FAERS Safety Report 9676255 (Version 1)
Quarter: 2013Q4

REPORT INFORMATION
  Report Type: Spontaneous
  Country: US (occurrence: US)
  Receive Date: 20131107
  Receipt Date: 20131107
  Transmission Date: 20140711
  Serious: No
  Sender: FDA-Public Use
  Company Number: US-ENDO PHARMACEUTICALS INC.-HCDA20120081

PATIENT
  Age: 79 Year
  Sex: Female
  Weight: 90.8 kg

DRUGS (1)
  1. HYDROCODONE/ACETAMINOPHEN [Suspect]
     Indication: BURSITIS
     Dosage: 5/325MG
     Route: 048
     Dates: start: 201208, end: 201209

REACTIONS (3)
  - Tinnitus [Recovered/Resolved]
  - Disorientation [Recovered/Resolved]
  - Dizziness [Recovered/Resolved]
